FAERS Safety Report 8863101 (Version 4)
Quarter: 2013Q3

REPORT INFORMATION
  Report Type: Report from Study
  Country: US (occurrence: US)
  Receive Date: 20121026
  Receipt Date: 20130726
  Transmission Date: 20140515
  Serious: Yes (Hospitalization)
  Sender: FDA-Public Use
  Company Number: US-PFIZER INC-2012259615

PATIENT
  Age: 71 Year
  Sex: Female
  Weight: 57.5 kg

DRUGS (8)
  1. OXALIPLATIN [Suspect]
     Indication: COLORECTAL CANCER METASTATIC
     Dosage: 107 MG, CYCLIC
     Dates: start: 20120525, end: 20121026
  2. FLUOROURACIL [Suspect]
     Indication: COLORECTAL CANCER METASTATIC
     Dosage: 528 MG, CYCLIC
     Dates: start: 20120525, end: 20120930
  3. VEGFR1 (PK ANALYTE) [Suspect]
     Indication: COLORECTAL CANCER METASTATIC
     Dosage: VEGFR1 LIQUID
     Dates: start: 20120525
  4. FOLINIC ACID [Suspect]
     Indication: COLORECTAL CANCER METASTATIC
     Dosage: 660 MG, CYCLIC
     Dates: start: 20120525, end: 20121026
  5. METOPROLOL [Concomitant]
  6. GLIMEPIRIDE [Concomitant]
  7. INSULIN [Concomitant]
  8. CELEXA [Concomitant]

REACTIONS (1)
  - Pyrexia [Recovered/Resolved]
